FAERS Safety Report 16835088 (Version 3)
Quarter: 2019Q4

REPORT INFORMATION
  Report Type: Report from Study
  Country: US (occurrence: US)
  Receive Date: 20190920
  Receipt Date: 20191204
  Transmission Date: 20200122
  Serious: Yes (Other)
  Sender: FDA-Public Use
  Company Number: US-ALEXION PHARMACEUTICALS INC.-A201913747

PATIENT
  Sex: Male

DRUGS (1)
  1. STRENSIQ [Suspect]
     Active Substance: ASFOTASE ALFA
     Indication: HYPOPHOSPHATASIA
     Dosage: UNK
     Route: 058

REACTIONS (9)
  - Injection site bruising [Unknown]
  - Injection site swelling [Unknown]
  - Fatigue [Unknown]
  - Injection site reaction [Unknown]
  - Headache [Not Recovered/Not Resolved]
  - Injection site erythema [Unknown]
  - Injection site warmth [Unknown]
  - Hypersomnia [Unknown]
  - Migraine [Unknown]

NARRATIVE: CASE EVENT DATE: 20190830
